FAERS Safety Report 8837118 (Version 3)
Quarter: 2013Q1

REPORT INFORMATION
  Report Type: Spontaneous
  Country: JP (occurrence: JP)
  Receive Date: 20121012
  Receipt Date: 20130315
  Transmission Date: 20140127
  Serious: Yes (Hospitalization, Other)
  Sender: FDA-Public Use
  Company Number: JP-BRISTOL-MYERS SQUIBB COMPANY-17021932

PATIENT
  Age: 67 Year
  Sex: Male

DRUGS (6)
  1. PARAPLATIN [Suspect]
     Indication: NON-SMALL CELL LUNG CANCER
     Dosage: AUC 5
     Route: 042
     Dates: start: 20121002
  2. GEMCITABINE HCL [Suspect]
     Indication: NON-SMALL CELL LUNG CANCER
     Dosage: DOSE VALUE:1000 MG/M2
     Route: 042
     Dates: start: 20121002
  3. ORGADRONE [Suspect]
     Indication: SUPPORTIVE CARE
     Dosage: 1 DF = 1 AMP
     Route: 042
     Dates: start: 20121002
  4. APREPITANT [Suspect]
     Indication: SUPPORTIVE CARE
     Route: 042
     Dates: start: 20121002
  5. WARFARIN POTASSIUM [Suspect]
     Indication: PROPHYLAXIS
     Route: 048
  6. PREDNISOLONE [Suspect]
     Indication: PROPHYLAXIS
     Route: 048

REACTIONS (4)
  - Cardiac failure [Not Recovered/Not Resolved]
  - Dysuria [Unknown]
  - Heart rate increased [None]
  - Acute myocardial infarction [None]
